FAERS Safety Report 8374443-8 (Version None)
Quarter: 2012Q2

REPORT INFORMATION
  Report Type: 
  Country: None (occurrence: None)
  Receive Date: 20120521
  Receipt Date: 20120514
  Transmission Date: 20120825
  Serious: Yes (Other)
  Sender: FDA-Public Use
  Company Number: US-UCBSA-8054282

PATIENT
  Age: 29 Year
  Sex: Female

DRUGS (12)
  1. FOLIC ACID [Suspect]
     Indication: PREGNANCY
     Route: 048
  2. VITAMIN D SUPPLEMENT [Concomitant]
     Indication: VITAMIN SUPPLEMENTATION
     Dosage: DOSE FREQ.: DAILY
     Route: 048
     Dates: start: 20091015
  3. ASPIRIN [Concomitant]
     Indication: ANTICOAGULANT THERAPY
     Dosage: 1 TAB DAILY DOSE FREQ.: DAILY
     Route: 048
  4. TOPAMAX [Concomitant]
     Indication: CONVULSION
     Dosage: DOSE FREQ.: DAILY
     Dates: end: 20090701
  5. KEPPRA [Suspect]
     Indication: EPILEPSY
     Dosage: DOSE FREQ.: DAILY
     Dates: end: 20091004
  6. KEPPRA XR [Suspect]
     Indication: EPILEPSY
     Dates: start: 20091005, end: 20091104
  7. COLACE [Concomitant]
     Indication: CONSTIPATION PROPHYLAXIS
     Route: 048
  8. IV IGG [Concomitant]
     Indication: IMMUNODEFICIENCY
     Dosage: DOSE FREQ.: ONCE MONTHLY
     Route: 042
  9. KEPPRA [Suspect]
     Dosage: DOSE FREQ.: DAILY
     Dates: start: 20091105
  10. DHA SUPPLEMENT [Concomitant]
     Indication: PREGNANCY
     Dosage: 1 TAB DAILY DOSE FREQ.: DAILY
     Route: 048
     Dates: start: 20091001
  11. PEPCID [Concomitant]
     Route: 048
  12. VITAMIN AND MINERAL PRENATAL SUPPLEMENT W/ FOLIC ACID CAP [Concomitant]
     Indication: PREGNANCY
     Dosage: 1 TABLET DAILY DOSE FREQ.: DAILY
     Route: 048

REACTIONS (6)
  - VITAMIN D DEFICIENCY [None]
  - COMPLEX PARTIAL SEIZURES [None]
  - PREGNANCY [None]
  - POSTPARTUM SEPSIS [None]
  - PETIT MAL EPILEPSY [None]
  - POSTPARTUM HAEMORRHAGE [None]
